FAERS Safety Report 15338183 (Version 2)
Quarter: 2018Q3

REPORT INFORMATION
  Report Type: Spontaneous
  Country: GB (occurrence: GB)
  Receive Date: 20180831
  Receipt Date: 20180906
  Transmission Date: 20181010
  Serious: Yes (Hospitalization, Other)
  Sender: FDA-Public Use
  Company Number: GB-009507513-2007-165356-NL

PATIENT
  Age: 23 Year
  Sex: Female

DRUGS (6)
  1. IMPLANON [Suspect]
     Active Substance: ETONOGESTREL
     Indication: CONTRACEPTION
     Dosage: CONTINUING: UNK
     Dates: start: 200302
  2. EFAVIRENZ. [Interacting]
     Active Substance: EFAVIRENZ
     Indication: HIV INFECTION
     Dates: start: 2004
  3. BECOTIDE [Concomitant]
     Active Substance: BECLOMETHASONE DIPROPIONATE
     Indication: ASTHMA
     Dosage: UNK UNK, PRN
     Route: 055
  4. ZIDOVUDINE. [Interacting]
     Active Substance: ZIDOVUDINE
     Indication: HIV INFECTION
     Dosage: CONTINUING: UNK
     Dates: start: 2004
  5. LAMIVUDINE. [Interacting]
     Active Substance: LAMIVUDINE
     Indication: HIV INFECTION
     Dosage: 300 MG, QD
     Dates: start: 2004
  6. EFAVIRENZ. [Concomitant]
     Active Substance: EFAVIRENZ
     Indication: ASTHMA
     Route: 055

REACTIONS (4)
  - Pregnancy with implant contraceptive [Unknown]
  - Ectopic pregnancy [Recovered/Resolved]
  - Amenorrhoea [Recovered/Resolved]
  - Drug interaction [Unknown]

NARRATIVE: CASE EVENT DATE: 20050820
